FAERS Safety Report 16660254 (Version 1)
Quarter: 2019Q3

REPORT INFORMATION
  Report Type: Spontaneous
  Country: JP (occurrence: JP)
  Receive Date: 20190802
  Receipt Date: 20190802
  Transmission Date: 20191004
  Serious: Yes (Hospitalization)
  Sender: FDA-Public Use
  Company Number: JP-TEVA-2019-JP-1087160

PATIENT
  Age: 78 Year
  Sex: Female

DRUGS (10)
  1. ANTIHISTAMINES NOS [Suspect]
     Active Substance: ANTIHISTAMINES NOS
     Route: 065
  2. AMLODIPINE [Concomitant]
     Active Substance: AMLODIPINE BESYLATE
     Indication: HYPERTENSION
     Dosage: 5 MILLIGRAM DAILY;
     Route: 048
  3. OLMESARTAN [Concomitant]
     Active Substance: OLMESARTAN
     Dosage: 10 MILLIGRAM DAILY;
     Route: 048
  4. DONEPEZIL. [Suspect]
     Active Substance: DONEPEZIL
     Indication: PRURITUS
     Dosage: 5 MILLIGRAM DAILY;
     Route: 065
  5. BETAMETHASONE. [Suspect]
     Active Substance: BETAMETHASONE
     Indication: PRURITUS
     Dosage: ALMOST EVERY OTHER WEEK FOR 10 YEARS
     Route: 048
  6. DOXAZOCINE [Concomitant]
     Indication: HYPERTENSION
     Dosage: 1 MILLIGRAM DAILY;
     Route: 048
  7. METFORMIN [Concomitant]
     Active Substance: METFORMIN HYDROCHLORIDE
     Indication: TYPE 2 DIABETES MELLITUS
     Dosage: 500 MILLIGRAM DAILY;
     Route: 048
  8. CANDESARTAN. [Concomitant]
     Active Substance: CANDESARTAN
     Indication: HYPERTENSION
     Dosage: 8 MILLIGRAM DAILY;
     Route: 048
  9. PITAVASTATIN CALCIUM [Concomitant]
     Active Substance: PITAVASTATIN CALCIUM
     Dosage: 1 MILLIGRAM DAILY;
     Route: 048
  10. VILDAGLIPTIN [Concomitant]
     Active Substance: VILDAGLIPTIN
     Indication: TYPE 2 DIABETES MELLITUS
     Dosage: 100 MILLIGRAM DAILY;
     Route: 048

REACTIONS (8)
  - Secondary adrenocortical insufficiency [Recovering/Resolving]
  - Malnutrition [Recovering/Resolving]
  - Steroid withdrawal syndrome [Recovering/Resolving]
  - Oedema peripheral [Unknown]
  - Hypokalaemia [Recovering/Resolving]
  - Eosinophilia [Recovering/Resolving]
  - Sinus arrhythmia [Unknown]
  - Cognitive disorder [Recovered/Resolved]

NARRATIVE: CASE EVENT DATE: 201507
